FAERS Safety Report 4971735-7 (Version None)
Quarter: 2006Q2

REPORT INFORMATION
  Report Type: 
  Country: None (occurrence: None)
  Receive Date: 20060407
  Receipt Date: 20060329
  Transmission Date: 20061013
  Serious: Yes (Hospitalization, Other)
  Sender: FDA-Public Use
  Company Number: HQWYE945812DEC05

PATIENT
  Age: 56 Year
  Sex: Male
  Weight: 111.5 kg

DRUGS (19)
  1. RAPAMUNE [Suspect]
     Indication: PROPHYLAXIS AGAINST TRANSPLANT REJECTION
     Dosage: SEE IMAGE
     Route: 048
     Dates: start: 20021105, end: 20050421
  2. RAPAMUNE [Suspect]
     Indication: PROPHYLAXIS AGAINST TRANSPLANT REJECTION
     Dosage: SEE IMAGE
     Route: 048
     Dates: start: 20050422, end: 20050425
  3. RAPAMUNE [Suspect]
     Indication: PROPHYLAXIS AGAINST TRANSPLANT REJECTION
     Dosage: SEE IMAGE
     Route: 048
     Dates: start: 20050426, end: 20051208
  4. RAPAMUNE [Suspect]
     Indication: PROPHYLAXIS AGAINST TRANSPLANT REJECTION
     Dosage: SEE IMAGE
     Route: 048
     Dates: start: 20051209, end: 20051221
  5. ASPIRIN [Concomitant]
  6. SODIUM BICARBONATE IN PLASTIC CONTAINER [Concomitant]
  7. ALBUTEROL [Concomitant]
  8. LASIX [Concomitant]
  9. LOPRESSOR [Concomitant]
  10. LOPRESSOR [Concomitant]
  11. LOPRESSOR [Concomitant]
  12. LISINOPRIL [Concomitant]
  13. LISINOPRIL [Concomitant]
  14. LISINOPRIL [Concomitant]
  15. LIPITOR [Concomitant]
  16. ZETIA [Concomitant]
  17. CELLCEPT [Concomitant]
  18. CELLCEPT [Concomitant]
  19. PREDNISONE TAB [Concomitant]

REACTIONS (8)
  - BLOOD POTASSIUM INCREASED [None]
  - CARDIOMEGALY [None]
  - DRUG TOXICITY [None]
  - EJECTION FRACTION DECREASED [None]
  - HAPTOGLOBIN INCREASED [None]
  - HEART RATE DECREASED [None]
  - INTERSTITIAL LUNG DISEASE [None]
  - PLATELET COUNT DECREASED [None]
